FAERS Safety Report 6401838-1 (Version None)
Quarter: 2009Q4

REPORT INFORMATION
  Report Type: 
  Country: None (occurrence: None)
  Receive Date: 20091013
  Receipt Date: 20091013
  Transmission Date: 20100525
  Serious: Yes (Other)
  Sender: FDA-Public Use
  Company Number: None

PATIENT
  Age: 51 Year
  Sex: Female
  Weight: 53.5244 kg

DRUGS (1)
  1. FOSAMAX [Suspect]
     Indication: OSTEOPENIA
     Dosage: 1 TABLET WEEKLY PO
     Route: 048
     Dates: start: 20040305, end: 20090610

REACTIONS (7)
  - INFECTION [None]
  - INFLAMMATION [None]
  - LYMPH NODE PALPABLE [None]
  - PAIN IN JAW [None]
  - TOOTH DISORDER [None]
  - TOOTH EXTRACTION [None]
  - TOOTHACHE [None]
